FAERS Safety Report 24090729 (Version 1)
Quarter: 2024Q3

REPORT INFORMATION
  Report Type: Spontaneous
  Country: GB (occurrence: GB)
  Receive Date: 20240715
  Receipt Date: 20240715
  Transmission Date: 20241017
  Serious: Yes (Disabling, Other)
  Sender: TEVA
  Company Number: None

PATIENT
  Age: 20 Year
  Sex: Female

DRUGS (1)
  1. ARIPIPRAZOLE [Suspect]
     Active Substance: ARIPIPRAZOLE
     Indication: Psychotic disorder
     Dosage: 10MG ONCE A DAY
     Route: 065
     Dates: start: 20240412, end: 2024

REACTIONS (1)
  - Oculogyric crisis [Recovered/Resolved]

NARRATIVE: CASE EVENT DATE: 20240619
